FAERS Safety Report 9828395 (Version 1)
Quarter: 2014Q1

REPORT INFORMATION
  Report Type: Report from Study
  Country: AR (occurrence: AR)
  Receive Date: 20140117
  Receipt Date: 20140117
  Transmission Date: 20141002
  Serious: Yes (Other)
  Sender: FDA-Public Use
  Company Number: AR-GLAXOSMITHKLINE-B0961263A

PATIENT
  Sex: 0

DRUGS (2)
  1. MELPHALAN [Suspect]
     Indication: RETINOBLASTOMA
     Route: 047
  2. TOPOTECAN [Suspect]
     Indication: RETINOBLASTOMA
     Route: 047

REACTIONS (1)
  - Neutropenia [Unknown]
